FAERS Safety Report 10402974 (Version 1)
Quarter: 2014Q3

REPORT INFORMATION
  Report Type: Spontaneous
  Country: US (occurrence: None)
  Receive Date: 20140820
  Receipt Date: 20140820
  Transmission Date: 20150326
  Serious: Yes (Other)
  Sender: FDA-Public Use
  Company Number: NSR_01603_2014

PATIENT
  Age: 34 Year
  Sex: Female

DRUGS (1)
  1. BACLOFEN. [Suspect]
     Active Substance: BACLOFEN
     Indication: MUSCLE SPASMS
     Dosage: BOLUS AT L3-L4 LEVEL USING 20-GAGUE SPINAL NEEDLE
     Route: 037

REACTIONS (4)
  - Headache [None]
  - Nausea [None]
  - Drug intolerance [None]
  - Treatment failure [None]
